FAERS Safety Report 10189748 (Version 1)
Quarter: 2014Q2

REPORT INFORMATION
  Report Type: Spontaneous
  Country: US (occurrence: US)
  Receive Date: 20140522
  Receipt Date: 20140522
  Transmission Date: 20141212
  Serious: Yes (Hospitalization)
  Sender: FDA-Public Use
  Company Number: US-SA-2014SA044343

PATIENT
  Age: 70 Year
  Sex: Female
  Weight: 72.12 kg

DRUGS (7)
  1. LANTUS [Suspect]
     Indication: TYPE 1 DIABETES MELLITUS
     Dosage: DOSE:16 UNIT(S)
     Route: 065
     Dates: start: 2003
  2. LEVOTHYROXINE [Concomitant]
     Dates: start: 1979
  3. CARVEDILOL [Concomitant]
     Dates: start: 2013
  4. VITAMIN C [Concomitant]
     Dates: start: 2008
  5. ATORVASTATIN [Concomitant]
     Dates: start: 2013
  6. FUROSEMIDE [Concomitant]
     Dates: start: 2014
  7. LISINOPRIL [Concomitant]
     Dates: start: 2014

REACTIONS (2)
  - Hypoglycaemia [Recovered/Resolved]
  - Glycosylated haemoglobin increased [Unknown]
